FAERS Safety Report 8612366-7 (Version None)
Quarter: 2012Q3

REPORT INFORMATION
  Report Type: 
  Country: None (occurrence: None)
  Receive Date: 20120822
  Receipt Date: 20120816
  Transmission Date: 20120928
  Serious: Yes (Hospitalization)
  Sender: FDA-Public Use
  Company Number: US-PFIZER INC-2012201885

PATIENT
  Age: 25 Year
  Sex: Male
  Weight: 80.272 kg

DRUGS (5)
  1. OXYCODONE [Concomitant]
     Indication: PAIN
     Dosage: UNK
  2. XYNTHA [Suspect]
     Indication: FACTOR VIII DEFICIENCY
     Dosage: 25 IU/KG, EVERY 12-24 HOURS AS NEEDED
     Dates: start: 20090422, end: 20120604
  3. TYLENOL [Concomitant]
     Indication: PAIN
     Dosage: UNK
  4. GLUCOSAMINE [Concomitant]
     Dosage: UNK
  5. CHONDROITIN [Concomitant]
     Dosage: UNK

REACTIONS (3)
  - COAGULATION FACTOR VIII LEVEL ABNORMAL [None]
  - HAEMORRHAGE [None]
  - MUSCLE HAEMORRHAGE [None]
